FAERS Safety Report 9841907 (Version 5)
Quarter: 2014Q3

REPORT INFORMATION
  Report Type: Spontaneous
  Country: JP (occurrence: JP)
  Receive Date: 20140124
  Receipt Date: 20140915
  Transmission Date: 20150326
  Serious: Yes (Other)
  Sender: FDA-Public Use
  Company Number: JP-PFIZER INC-2013369502

PATIENT
  Age: 59 Year
  Sex: Male

DRUGS (1)
  1. TORISEL [Suspect]
     Active Substance: TEMSIROLIMUS
     Indication: METASTATIC RENAL CELL CARCINOMA
     Dosage: 25 MG, WEEKLY
     Route: 041

REACTIONS (8)
  - Hepatitis B [Recovered/Resolved]
  - Herpes zoster [Recovering/Resolving]
  - Post herpetic neuralgia [Not Recovered/Not Resolved]
  - Dry skin [Not Recovered/Not Resolved]
  - Urinary retention [Recovered/Resolved]
  - Alanine aminotransferase increased [Recovering/Resolving]
  - Malaise [Not Recovered/Not Resolved]
  - Aspartate aminotransferase increased [Recovering/Resolving]
